FAERS Safety Report 5189051-X (Version None)
Quarter: 2006Q4

REPORT INFORMATION
  Report Type: 
  Country: None (occurrence: None)
  Receive Date: 20061221
  Receipt Date: 20061212
  Transmission Date: 20070319
  Serious: Yes (Death, Hospitalization)
  Sender: FDA-Public Use
  Company Number: FR-ELI_LILLY_AND_COMPANY-FR200612001926

PATIENT
  Age: 48 Year
  Sex: Female
  Weight: 33 kg

DRUGS (7)
  1. PROZAC [Suspect]
     Dosage: 20 MG, DAILY (1/D)
     Route: 048
     Dates: start: 20060309
  2. ZIAGEN [Concomitant]
     Indication: HIV INFECTION
     Dosage: 300 MG, 2/D
     Route: 048
     Dates: start: 20060504, end: 20061024
  3. EPIVIR [Concomitant]
     Indication: HIV INFECTION
     Dosage: 150 MG, 2/D
     Route: 048
     Dates: start: 20060504, end: 20061024
  4. VIDEX                                   /USA/ [Concomitant]
     Indication: HIV INFECTION
     Dosage: 250 MG, DAILY (1/D)
     Route: 048
     Dates: start: 20060504, end: 20061024
  5. ATARAX [Concomitant]
     Dosage: UNK, UNKNOWN
     Route: 065
  6. ESOMEPRAZOLE MAGNESIUM [Concomitant]
     Dosage: UNK, UNKNOWN
     Route: 065
  7. IMOVANE                                 /UNK/ [Concomitant]
     Dosage: UNK, UNKNOWN
     Route: 065

REACTIONS (4)
  - DEATH [None]
  - DYSPNOEA [None]
  - GENERAL PHYSICAL HEALTH DETERIORATION [None]
  - PULMONARY HYPERTENSION [None]
